FAERS Safety Report 9437446 (Version 1)
Quarter: 2013Q3

REPORT INFORMATION
  Report Type: Spontaneous
  Country: FR (occurrence: None)
  Receive Date: 20130731
  Receipt Date: 20130731
  Transmission Date: 20140515
  Serious: Yes (Other)
  Sender: FDA-Public Use
  Company Number: 2013-1780

PATIENT
  Age: 66 Year
  Sex: Male
  Weight: 77 kg

DRUGS (5)
  1. SOMATULINE L.P. 90MG (LANREOTIDE AUTOGEL)(LANREOTIDE) (LANREOTIDE ACETATE) [Suspect]
     Indication: CARCINOID TUMOUR
     Dosage: 120 MG (120 MG, 1 IN 15 D)
     Route: 058
     Dates: start: 201209
  2. GLICLAZIDE [Concomitant]
  3. ENALAPRIL [Concomitant]
  4. SIMVASTATINE (SIMVASTATIN) [Concomitant]
  5. ALLOPURINOL [Concomitant]

REACTIONS (4)
  - Burning sensation [None]
  - Face oedema [None]
  - Crying [None]
  - Hypersensitivity [None]
